FAERS Safety Report 9773325 (Version 1)
Quarter: 2013Q4

REPORT INFORMATION
  Report Type: Spontaneous
  Country: GB (occurrence: GB)
  Receive Date: 20131219
  Receipt Date: 20131219
  Transmission Date: 20140711
  Serious: Yes (Other)
  Sender: FDA-Public Use
  Company Number: GB-MYLANLABS-2013S1027617

PATIENT
  Sex: Male

DRUGS (3)
  1. GLICLAZIDE [Suspect]
     Indication: PRODUCT USED FOR UNKNOWN INDICATION
  2. METFORMIN [Suspect]
     Indication: PRODUCT USED FOR UNKNOWN INDICATION
  3. APROVEL [Suspect]
     Indication: HYPERTENSION
     Route: 048

REACTIONS (2)
  - Diabetes mellitus inadequate control [Unknown]
  - Visual impairment [Unknown]
